FAERS Safety Report 6899104-3 (Version None)
Quarter: 2010Q3

REPORT INFORMATION
  Report Type: 
  Country: None (occurrence: None)
  Receive Date: 20100802
  Receipt Date: 20080105
  Transmission Date: 20110219
  Serious: No
  Sender: FDA-Public Use
  Company Number: US-PFIZER INC-2008001733

PATIENT
  Sex: Female

DRUGS (1)
  1. LYRICA [Suspect]
     Dates: start: 20071001

REACTIONS (6)
  - CHEST DISCOMFORT [None]
  - FLUSHING [None]
  - FORMICATION [None]
  - HOT FLUSH [None]
  - NIGHT SWEATS [None]
  - THINKING ABNORMAL [None]
